FAERS Safety Report 7389491-4 (Version None)
Quarter: 2011Q2

REPORT INFORMATION
  Report Type: 
  Country: None (occurrence: None)
  Receive Date: 20110401
  Receipt Date: 20110323
  Transmission Date: 20111010
  Serious: No
  Sender: FDA-Public Use
  Company Number: US-CEPHALON-2011001383

PATIENT
  Sex: Female
  Weight: 104 kg

DRUGS (4)
  1. FENTANYL-100 [Concomitant]
  2. FENTORA [Suspect]
     Indication: MIGRAINE
  3. TOPROL-XL [Concomitant]
  4. XANAX [Concomitant]

REACTIONS (2)
  - GASTROOESOPHAGEAL REFLUX DISEASE [None]
  - DRUG PRESCRIBING ERROR [None]
